FAERS Safety Report 23382606 (Version 1)
Quarter: 2024Q1

REPORT INFORMATION
  Report Type: Spontaneous
  Country: US (occurrence: US)
  Receive Date: 20240109
  Receipt Date: 20240109
  Transmission Date: 20240410
  Serious: No
  Sender: FDA-Public Use
  Company Number: US-GSK-US2024000608

PATIENT
  Sex: Male

DRUGS (1)
  1. TRELEGY ELLIPTA [Suspect]
     Active Substance: FLUTICASONE FUROATE\UMECLIDINIUM BROMIDE\VILANTEROL TRIFENATATE
     Indication: Product used for unknown indication
     Dosage: 1 PUFF(S), AS NEEDED
     Dates: start: 20230601, end: 20230607

REACTIONS (3)
  - Dizziness [Unknown]
  - Disturbance in attention [Unknown]
  - Chest pain [Unknown]

NARRATIVE: CASE EVENT DATE: 20230601
